FAERS Safety Report 9091568 (Version 1)
Quarter: 2013Q1

REPORT INFORMATION
  Report Type: Report from Study
  Country: US (occurrence: US)
  Receive Date: 20130131
  Receipt Date: 20130131
  Transmission Date: 20140127
  Serious: No
  Sender: FDA-Public Use
  Company Number: US-ABBOTT-12P-163-0992626-00

PATIENT
  Age: 49 Year
  Sex: Female

DRUGS (13)
  1. HUMIRA [Suspect]
     Indication: RHEUMATOID ARTHRITIS
     Dates: start: 201208
  2. OMEPRAZOLE [Concomitant]
     Indication: ABDOMINAL DISCOMFORT
  3. VITAMIN D [Concomitant]
     Indication: PRODUCT USED FOR UNKNOWN INDICATION
  4. MULTI-VITAMIN [Concomitant]
     Indication: PRODUCT USED FOR UNKNOWN INDICATION
  5. VALCYCLOVIR [Concomitant]
     Indication: PRODUCT USED FOR UNKNOWN INDICATION
     Dosage: 500MG DAILY
  6. BENZOTROPINE [Concomitant]
     Indication: MENTAL DISORDER
  7. ABILIFY [Concomitant]
     Indication: MENTAL DISORDER
     Dosage: 30MG DIALY
  8. DEPAKOTE [Concomitant]
     Indication: MENTAL DISORDER
  9. SEROQUEL SR [Concomitant]
     Indication: BIPOLAR DISORDER
     Dosage: AT NIGHT
  10. SEROQUEL SR [Concomitant]
     Indication: AFFECTIVE DISORDER
  11. SEROQUEL [Concomitant]
     Indication: BIPOLAR DISORDER
     Dosage: UP TO 3 TIMES DAILY AS NEEDED
  12. SEROQUEL [Concomitant]
     Indication: AFFECTIVE DISORDER
  13. DICLOFENAC [Concomitant]
     Indication: ARTHRALGIA
     Dates: start: 201209

REACTIONS (2)
  - Abdominal discomfort [Not Recovered/Not Resolved]
  - Headache [Not Recovered/Not Resolved]
